FAERS Safety Report 22251668 (Version 1)
Quarter: 2023Q2

REPORT INFORMATION
  Report Type: Spontaneous
  Country: CN (occurrence: CN)
  Receive Date: 20230425
  Receipt Date: 20230425
  Transmission Date: 20230721
  Serious: Yes (Death, Hospitalization, Other)
  Sender: FDA-Public Use
  Company Number: CN-SA-2023SA125169

PATIENT
  Age: 86 Year
  Sex: Male

DRUGS (7)
  1. CLOPIDOGREL BISULFATE [Suspect]
     Active Substance: CLOPIDOGREL BISULFATE
     Indication: Cerebral infarction
     Dosage: 75 MG, QD
     Route: 048
     Dates: start: 20200502, end: 20200505
  2. ASPIRIN [Concomitant]
     Active Substance: ASPIRIN
     Indication: Cerebral infarction
     Dosage: 100 MG, QD
     Route: 048
     Dates: start: 202004, end: 20200502
  3. ATORVASTATIN CALCIUM [Concomitant]
     Active Substance: ATORVASTATIN CALCIUM
     Indication: Cerebral infarction
     Dosage: 10 MG, QD
     Route: 048
     Dates: start: 202004
  4. LEVAMLODIPINE BESYLATE [Concomitant]
     Active Substance: LEVAMLODIPINE BESYLATE
     Indication: Hypertension
     Dosage: 2.5 MG, QD
     Route: 048
  5. SODIUM CHLORIDE [Concomitant]
     Active Substance: SODIUM CHLORIDE
     Indication: Vehicle solution use
     Dosage: 250 ML, QD (WITH XUESHUANTONG INJECTION 450 MG/D)
     Route: 042
     Dates: start: 20200501
  6. SODIUM CHLORIDE [Concomitant]
     Active Substance: SODIUM CHLORIDE
     Dosage: 250 ML, QD (WITH CATTLE ENCEPHALON GLYCOSIDE AND IGNOTIN INJECTION 5 MG/D)
     Route: 042
     Dates: start: 20200501
  7. SODIUM CHLORIDE [Concomitant]
     Active Substance: SODIUM CHLORIDE
     Dosage: 20 ML (WITH VERAPAMIL 5 MG)
     Route: 042
     Dates: start: 20200512

REACTIONS (17)
  - Circulatory collapse [Fatal]
  - Respiratory failure [Fatal]
  - Productive cough [Fatal]
  - Somnolence [Fatal]
  - Rales [Fatal]
  - Atrial fibrillation [Fatal]
  - Coma [Fatal]
  - Unresponsive to stimuli [Fatal]
  - Nervous system disorder [Fatal]
  - Mental disorder [Fatal]
  - Mental impairment [Fatal]
  - Altered state of consciousness [Fatal]
  - Gingival bleeding [Fatal]
  - Thrombotic thrombocytopenic purpura [Fatal]
  - Pyrexia [Fatal]
  - Microangiopathic haemolytic anaemia [Fatal]
  - Occult blood positive [Fatal]

NARRATIVE: CASE EVENT DATE: 20200505
